FAERS Safety Report 4663346-8 (Version None)
Quarter: 2005Q2

REPORT INFORMATION
  Report Type: 
  Country: None (occurrence: None)
  Receive Date: 20050517
  Receipt Date: 20050505
  Transmission Date: 20051028
  Serious: Yes (Death, Hospitalization)
  Sender: FDA-Public Use
  Company Number: BR-JNJFOC-20050501956

PATIENT
  Age: 78 Year
  Sex: Female
  Weight: 70 kg

DRUGS (2)
  1. TYLEX [Suspect]
     Indication: PAIN
  2. AMYTRIL [Concomitant]

REACTIONS (2)
  - GASTRIC CANCER [None]
  - NEOPLASM MALIGNANT [None]
